FAERS Safety Report 4411701-3 (Version None)
Quarter: 2004Q3

REPORT INFORMATION
  Report Type: 
  Country: None (occurrence: None)
  Receive Date: 20040727
  Receipt Date: 20040714
  Transmission Date: 20050211
  Serious: Yes (Hospitalization)
  Sender: FDA-Public Use
  Company Number: DE-JNJFOC-20040704105

PATIENT
  Age: 21 Year
  Sex: Female

DRUGS (3)
  1. REMICADE [Suspect]
     Indication: CROHN'S DISEASE
     Dosage: 300 MG, INTRAVENOUS
     Route: 042
     Dates: start: 20031007, end: 20040312
  2. AZATHIOPRIN (AZATHIOPRINE) [Suspect]
     Indication: CROHN'S DISEASE
     Dosage: 75 MG
     Dates: start: 19980101, end: 20040510
  3. PENTASA [Concomitant]

REACTIONS (6)
  - ANAEMIA [None]
  - ANAL CANCER [None]
  - LEUKOPENIA [None]
  - PROCTALGIA [None]
  - SQUAMOUS CELL CARCINOMA [None]
  - THROMBOCYTOPENIA [None]
